FAERS Safety Report 15279848 (Version 2)
Quarter: 2018Q3

REPORT INFORMATION
  Report Type: Spontaneous
  Country: NL (occurrence: NL)
  Receive Date: 20180815
  Receipt Date: 20180919
  Transmission Date: 20181010
  Serious: Yes (Hospitalization)
  Sender: FDA-Public Use
  Company Number: NL-PFIZER INC-2018321988

PATIENT
  Age: 64 Year
  Sex: Male

DRUGS (13)
  1. BISACODYL. [Concomitant]
     Active Substance: BISACODYL
     Dosage: 5 MG, UNK
     Route: 048
  2. TESTOSTERON /00103101/ [Concomitant]
     Active Substance: TESTOSTERONE
     Dosage: 1 DF, UNK
  3. MESALAZINE [Concomitant]
     Active Substance: MESALAMINE
     Dosage: 2 G, 2X/DAY
     Route: 048
  4. TESTOSTERON /00103101/ [Concomitant]
     Active Substance: TESTOSTERONE
     Dosage: 1 DF, UNK
  5. HYDROCHLOORTHIAZIDE [Concomitant]
     Active Substance: HYDROCHLOROTHIAZIDE
     Dosage: 25 MG, 1X/DAY
     Route: 048
  6. AMLODIPINE [Concomitant]
     Active Substance: AMLODIPINE BESYLATE
     Dosage: 10 MG, 1X/DAY
     Route: 048
  7. PICOPREP [Concomitant]
     Active Substance: ANHYDROUS CITRIC ACID\MAGNESIUM OXIDE\SODIUM PICOSULFATE
     Dosage: UNK
  8. PROPRANOLOL [Concomitant]
     Active Substance: PROPRANOLOL HYDROCHLORIDE
     Dosage: 40 MG, 1X/DAY
     Route: 048
  9. SOMAVERT [Suspect]
     Active Substance: PEGVISOMANT
     Indication: ACROMEGALY
     Dosage: 20 MG, 1X/DAY
     Route: 058
     Dates: start: 20111121
  10. ENALAPRIL [Concomitant]
     Active Substance: ENALAPRIL
     Dosage: 20 MG, 1X/DAY
     Route: 048
  11. PANTOPRAZOL [Concomitant]
     Active Substance: PANTOPRAZOLE SODIUM
     Dosage: 40 MG, 1X/DAY
     Route: 048
  12. SIMVASTATINE [Concomitant]
     Active Substance: SIMVASTATIN
     Dosage: 20 MG, 1X/DAY
     Route: 048
  13. TIAPRIDE [Concomitant]
     Active Substance: TIAPRIDE
     Dosage: 100 MG, UNK
     Route: 048

REACTIONS (1)
  - Pneumonia [Recovered/Resolved]

NARRATIVE: CASE EVENT DATE: 201807
